FAERS Safety Report 8958116 (Version 1)
Quarter: 2012Q4

REPORT INFORMATION
  Report Type: 
  Country: US (occurrence: US)
  Receive Date: 20121211
  Receipt Date: 20121211
  Transmission Date: 20130627
  Serious: Yes (Death, Other)
  Sender: FDA-Public Use
  Company Number: US-FRI-1000040860

PATIENT
  Age: 56 Year
  Sex: Male
  Weight: 44.1 kg

DRUGS (1)
  1. TEFLARO [Suspect]
     Indication: STAPHYLOCOCCAL INFECTION
     Dosage: 1200 mg
     Route: 042
     Dates: start: 20120712, end: 20120724

REACTIONS (1)
  - Stevens-Johnson syndrome [Fatal]
